FAERS Safety Report 17269205 (Version 1)
Quarter: 2020Q1

REPORT INFORMATION
  Report Type: Spontaneous
  Country: US (occurrence: US)
  Receive Date: 20200114
  Receipt Date: 20200114
  Transmission Date: 20200409
  Serious: No
  Sender: FDA-Public Use
  Company Number: US-VANDA PHARMACEUTICALS, INC-2019TASUS003579

PATIENT
  Sex: Male

DRUGS (1)
  1. HETLIOZ [Suspect]
     Active Substance: TASIMELTEON
     Indication: NON-24-HOUR SLEEP-WAKE DISORDER
     Dosage: 20 MG, QHS, EVERY 24 HOURS 1 HOUR BEFORE BEDTIME
     Route: 048
     Dates: start: 201909, end: 201911

REACTIONS (3)
  - Middle insomnia [Unknown]
  - Drug ineffective [Unknown]
  - Alanine aminotransferase increased [Recovered/Resolved]
